FAERS Safety Report 4940636-2 (Version None)
Quarter: 2006Q1

REPORT INFORMATION
  Report Type: 
  Country: None (occurrence: None)
  Receive Date: 20060206
  Receipt Date: 20051130
  Transmission Date: 20060701
  Serious: Yes (Other)
  Sender: FDA-Public Use
  Company Number: MEDI-0003812

PATIENT
  Age: 53 Year
  Sex: Male
  Weight: 98.3852 kg

DRUGS (10)
  1. ETHYOL [Suspect]
     Indication: CHEMOTHERAPY
     Dosage: 500 MG, 5 IN 1 WK, SUBCUTANEOUS
     Route: 058
     Dates: start: 20051021, end: 20051101
  2. ETHYOL [Suspect]
     Indication: RADIOTHERAPY
     Dosage: 500 MG, 5 IN 1 WK, SUBCUTANEOUS
     Route: 058
     Dates: start: 20051021, end: 20051101
  3. CISPLATIN [Concomitant]
  4. RADIATION THERAPY [Concomitant]
  5. TYLENOL W/ CODEINE [Concomitant]
  6. FENTANYL [Concomitant]
  7. SILVADENE (SULFADIAZINE SILVER) [Concomitant]
  8. MAALOX (MAGNESIUM HYDROXIDE, ALUMINIUM HYDROXIDE GEL) [Concomitant]
  9. LIDOCAINE VISCOUS (LIDOCAINE HYDROCHLORIDE) [Concomitant]
  10. BENADRYL [Concomitant]

REACTIONS (10)
  - FLUSHING [None]
  - MUCOSAL EROSION [None]
  - NAUSEA [None]
  - PHARYNGOLARYNGEAL PAIN [None]
  - PRURITUS [None]
  - PYREXIA [None]
  - RASH GENERALISED [None]
  - RASH PAPULAR [None]
  - SKIN INJURY [None]
  - WEIGHT DECREASED [None]
